FAERS Safety Report 7638910-4 (Version None)
Quarter: 2011Q3

REPORT INFORMATION
  Report Type: 
  Country: None (occurrence: None)
  Receive Date: 20110727
  Receipt Date: 20110718
  Transmission Date: 20111222
  Serious: Yes (Hospitalization, Other)
  Sender: FDA-Public Use
  Company Number: -SANOFI-AVENTIS-2011SA045461

PATIENT
  Age: 74 Year
  Sex: Female
  Weight: 70 kg

DRUGS (10)
  1. LISINOPRIL [Interacting]
     Indication: HYPERTENSION
     Dosage: SONDA NASOGASTRICA
     Route: 048
     Dates: start: 20110613
  2. AMLODIPINE BESYLATE [Interacting]
     Indication: HYPERTENSION
     Dosage: SONDA NASOGASTRICA
     Route: 048
     Dates: start: 20110613
  3. LEVOTHYROXINE SODIUM [Interacting]
     Route: 048
  4. ASPIRIN [Interacting]
     Indication: CEREBROVASCULAR ACCIDENT
     Dosage: SONDA NASOGASTRICA
     Route: 048
     Dates: start: 20110604
  5. PLAVIX [Suspect]
     Indication: CEREBROVASCULAR ACCIDENT
     Dosage: SONDA NASOGASTRICA
     Route: 048
     Dates: start: 20110604
  6. ATORVASTATIN [Interacting]
     Indication: CEREBROVASCULAR ACCIDENT
     Dosage: SONDA NASOGASTRICA
     Route: 048
     Dates: start: 20110604, end: 20110623
  7. FUROSEMIDE [Interacting]
     Indication: HYPERTENSION
     Dosage: SONDA NASOGASTRICA
     Route: 048
     Dates: start: 20110613
  8. KEPPRA [Interacting]
     Indication: CONVULSION
     Dosage: SONDA NASOGASTRICA
     Route: 048
     Dates: start: 20110604, end: 20110623
  9. NEXIUM [Interacting]
     Indication: UPPER GASTROINTESTINAL HAEMORRHAGE
     Dosage: SONDA NASOGASTRICA
     Route: 048
     Dates: start: 20110613
  10. HYDROCORTISONE [Interacting]
     Route: 048

REACTIONS (3)
  - DRUG INTERACTION [None]
  - HEPATITIS ACUTE [None]
  - MIXED LIVER INJURY [None]
